FAERS Safety Report 4279166-2 (Version None)
Quarter: 2004Q1

REPORT INFORMATION
  Report Type: 
  Country: None (occurrence: None)
  Receive Date: 20040123
  Receipt Date: 20040123
  Transmission Date: 20041129
  Serious: Yes (Life-Threatening)
  Sender: FDA-Public Use
  Company Number: None

PATIENT
  Age: 26 Year
  Sex: Male
  Weight: 90.3 kg

DRUGS (12)
  1. CLOZAPINE [Suspect]
     Indication: PSYCHOTIC DISORDER
     Dosage: 300 MG PO HS
     Route: 048
     Dates: start: 19030626, end: 20040106
  2. DIVALPROEX ER [DEPAKOTE ER] [Concomitant]
  3. DOCUSATE SODIUM CAPS [COLACE] [Concomitant]
  4. LITHIUM CARBONATE [Concomitant]
  5. PAROXETINE HCL [PAXIL] [Concomitant]
  6. QUETIAPINE FUMARATE [SEROQUEL] [Concomitant]
  7. RANITIDINE HCL[ZANTAC] [Concomitant]
  8. THERAPEUTIC MULTIPLE VITAMINS [THERA-M VITAMIN] [Concomitant]
  9. TYLENOL [Concomitant]
  10. ALUM + MAG HYDROXIDE [MYLANTA II] [Concomitant]
  11. CHLORAL HYDRATE [CHLORAL HYDRATE] [Concomitant]
  12. HYDROXYZINE PAMOATE [VISTARIL] [Concomitant]

REACTIONS (1)
  - NEUTROPHIL COUNT DECREASED [None]
